FAERS Safety Report 6550725-7 (Version None)
Quarter: 2010Q1

REPORT INFORMATION
  Report Type: 
  Country: None (occurrence: None)
  Receive Date: 20100125
  Receipt Date: 20100112
  Transmission Date: 20100710
  Serious: Yes (Hospitalization)
  Sender: FDA-Public Use
  Company Number: PHHY2010MX01814

PATIENT
  Age: 28 Year
  Sex: Female

DRUGS (2)
  1. DIOVAN HCT [Suspect]
     Indication: HYPERTENSION
     Dosage: 1 TABLET/DAY
  2. SANIDID [Concomitant]
     Dosage: UNK

REACTIONS (2)
  - ANAEMIA [None]
  - PERITONITIS [None]
